FAERS Safety Report 21847920 (Version 1)
Quarter: 2023Q1

REPORT INFORMATION
  Report Type: Spontaneous
  Country: RO (occurrence: RO)
  Receive Date: 20230111
  Receipt Date: 20230111
  Transmission Date: 20230417
  Serious: Yes (Other)
  Sender: FDA-Public Use
  Company Number: None

PATIENT
  Age: 54 Year
  Sex: Male
  Weight: 83 kg

DRUGS (4)
  1. ENBREL [Suspect]
     Active Substance: ETANERCEPT
     Indication: Rheumatoid arthritis
     Dosage: 50 MG, WEEKLY (7 DAY)
     Route: 058
     Dates: start: 20221102, end: 20221210
  2. LEFLUNOMIDE [Concomitant]
     Active Substance: LEFLUNOMIDE
     Indication: Rheumatoid arthritis
     Dosage: 20 MG, DAILY (24 HOURS)
     Route: 048
  3. IZONIAZIDA ARENA [Concomitant]
     Indication: Latent tuberculosis
     Dosage: 300 MG, DAILY (24 HOURS)
     Route: 048
  4. ACETAMINOPHEN\TRAMADOL HYDROCHLORIDE [Concomitant]
     Active Substance: ACETAMINOPHEN\TRAMADOL HYDROCHLORIDE
     Indication: Pain
     Dosage: 2 DF, AS NEEDED (2 TABLETS/DAY AS NECESSARY)
     Route: 048

REACTIONS (4)
  - Dyspnoea [Recovered/Resolved]
  - Injection site reaction [Recovered/Resolved]
  - Urticaria [Recovered/Resolved]
  - Erythema [Recovered/Resolved]
